FAERS Safety Report 14690421 (Version 1)
Quarter: 2018Q1

REPORT INFORMATION
  Report Type: Spontaneous
  Country: FR (occurrence: FR)
  Receive Date: 20180328
  Receipt Date: 20180328
  Transmission Date: 20180509
  Serious: Yes (Hospitalization)
  Sender: FDA-Public Use
  Company Number: FR-MYLANLABS-2018M1018128

PATIENT
  Age: 69 Year
  Sex: Female
  Weight: 63 kg

DRUGS (17)
  1. TRANSILANE                         /00029101/ [Concomitant]
     Indication: PRODUCT USED FOR UNKNOWN INDICATION
     Dosage: UNK
     Route: 048
     Dates: start: 20160708
  2. DEXAMETHASONE. [Suspect]
     Active Substance: DEXAMETHASONE
     Indication: PLASMA CELL MYELOMA
     Dosage: 40 MG, UNK
     Route: 065
  3. REVLIMID [Suspect]
     Active Substance: LENALIDOMIDE
     Indication: PLASMA CELL MYELOMA
     Dosage: 25 MG, QD
     Route: 048
     Dates: start: 20160818, end: 20160818
  4. CALCIUM VITAMIN D3 [Concomitant]
     Indication: MENOPAUSE
  5. DEXCHLORPHENIRAMIN                 /00043701/ [Concomitant]
     Indication: PREMEDICATION
     Route: 065
  6. CALCIUM VITAMIN D3 [Concomitant]
     Indication: MENOPAUSE
     Route: 048
  7. CALCIUM VITAMIN D3 [Concomitant]
     Indication: PROPHYLAXIS
  8. DEDROGYL [Concomitant]
     Active Substance: CALCIFEDIOL
     Dosage: UNK
  9. REVLIMID [Suspect]
     Active Substance: LENALIDOMIDE
     Dosage: 10 MG, QD
     Route: 048
     Dates: start: 20160817, end: 20160818
  10. LACTULOSE. [Concomitant]
     Active Substance: LACTULOSE
     Indication: PRODUCT USED FOR UNKNOWN INDICATION
     Route: 065
  11. CALCIUM VITAMIN D3 [Concomitant]
     Indication: OSTEOPOROSIS PROPHYLAXIS
  12. PARACETAMOL [Concomitant]
     Active Substance: ACETAMINOPHEN
     Indication: PREMEDICATION
     Route: 065
  13. DEXAMETHASONE. [Suspect]
     Active Substance: DEXAMETHASONE
     Dosage: UNK
     Route: 065
  14. DARATUMUMAB [Suspect]
     Active Substance: DARATUMUMAB
     Indication: PLASMA CELL MYELOMA
     Dosage: 16 MG/KG, UNK, TOTAL DOSE 1000 MG
     Route: 041
  15. DEDROGYL [Concomitant]
     Active Substance: CALCIFEDIOL
     Indication: OSTEOPOROSIS PROPHYLAXIS
     Route: 048
  16. CALCIUM VITAMIN D3 [Concomitant]
     Indication: PROPHYLAXIS
  17. CALCIUM VITAMIN D3 [Concomitant]
     Indication: OSTEOPOROSIS PROPHYLAXIS

REACTIONS (4)
  - Insomnia [Recovered/Resolved]
  - Agitation [Unknown]
  - Acute kidney injury [Recovered/Resolved]
  - Abdominal distension [Not Recovered/Not Resolved]

NARRATIVE: CASE EVENT DATE: 20160817
